FAERS Safety Report 5282644-0 (Version None)
Quarter: 2007Q1

REPORT INFORMATION
  Report Type: 
  Country: None (occurrence: None)
  Receive Date: 20070331
  Receipt Date: 20070326
  Transmission Date: 20070707
  Serious: Yes (Life-Threatening, Other)
  Sender: FDA-Public Use
  Company Number: CN-SHR-CN-2007-010581

PATIENT
  Age: 70 Year
  Sex: Female
  Weight: 70 kg

DRUGS (2)
  1. ULTRAVIST 300 [Suspect]
     Indication: COMPUTERISED TOMOGRAM
     Dosage: 80 ML, 1 DOSE
     Route: 040
     Dates: start: 20070323, end: 20070323
  2. METOPROLOL SUCCINATE [Concomitant]
     Indication: HYPERTENSION

REACTIONS (1)
  - ANAPHYLACTIC SHOCK [None]
